FAERS Safety Report 22915320 (Version 2)
Quarter: 2024Q1

REPORT INFORMATION
  Report Type: Report from Study
  Country: US (occurrence: US)
  Receive Date: 20230907
  Receipt Date: 20240215
  Transmission Date: 20240410
  Serious: No
  Sender: FDA-Public Use
  Company Number: US-BIOVITRUM-2023-US-014095

PATIENT
  Age: 42 Year
  Sex: Female

DRUGS (2)
  1. KINERET [Suspect]
     Active Substance: ANAKINRA
     Indication: Myasthenia gravis
     Dosage: 100MG, DAILY
     Route: 058
     Dates: start: 20190529
  2. KINERET [Suspect]
     Active Substance: ANAKINRA
     Dosage: 100MG, DAILY
     Route: 058
     Dates: start: 20190530

REACTIONS (4)
  - Intentional product misuse [Not Recovered/Not Resolved]
  - Product use issue [Unknown]
  - Herpes zoster [Unknown]
  - Product dose omission issue [Unknown]

NARRATIVE: CASE EVENT DATE: 20190529
